FAERS Safety Report 5530991-7 (Version None)
Quarter: 2007Q4

REPORT INFORMATION
  Report Type: 
  Country: None (occurrence: None)
  Receive Date: 20071130
  Receipt Date: 20071121
  Transmission Date: 20080405
  Serious: Yes (Hospitalization)
  Sender: FDA-Public Use
  Company Number: US-PFIZER INC-2007096923

PATIENT
  Sex: Male
  Weight: 101.2 kg

DRUGS (1)
  1. SU-011,248 [Suspect]
     Dosage: DAILY DOSE:37.5MG
     Route: 048

REACTIONS (1)
  - CHEST PAIN [None]
